FAERS Safety Report 7301960-1 (Version None)
Quarter: 2011Q1

REPORT INFORMATION
  Report Type: 
  Country: None (occurrence: None)
  Receive Date: 20110218
  Receipt Date: 20110210
  Transmission Date: 20110831
  Serious: Yes (Other)
  Sender: FDA-Public Use
  Company Number: JP-ROCHE-760371

PATIENT
  Sex: Male

DRUGS (1)
  1. XELODA [Suspect]
     Indication: LARGE INTESTINE CARCINOMA
     Dosage: DOSAGE IS UNCERTAIN, DRUG NAME REPORETD AS: XELODA 300.
     Route: 048

REACTIONS (1)
  - INTERSTITIAL LUNG DISEASE [None]
